FAERS Safety Report 24313397 (Version 1)
Quarter: 2024Q3

REPORT INFORMATION
  Report Type: Spontaneous
  Country: US (occurrence: None)
  Receive Date: 20240912
  Receipt Date: 20240912
  Transmission Date: 20241016
  Serious: Yes (Other)
  Sender: Public
  Company Number: None

PATIENT
  Age: 33 Year
  Sex: Female
  Weight: 117.93 kg

DRUGS (2)
  1. NIFEDIPINE [Suspect]
     Active Substance: NIFEDIPINE
     Indication: Hypertension
     Dosage: FREQUENCY : DAILY;?
     Route: 048
     Dates: start: 20240731
  2. ASPIRIN [Suspect]
     Active Substance: ASPIRIN
     Indication: Pregnancy
     Dosage: FREQUENCY : DAILY;?
     Route: 048
     Dates: start: 20240304

REACTIONS (5)
  - Premature labour [None]
  - Foetal malpresentation [None]
  - Twin pregnancy [None]
  - Maternal drugs affecting foetus [None]
  - Caesarean section [None]

NARRATIVE: CASE EVENT DATE: 20240801
